FAERS Safety Report 24594580 (Version 2)
Quarter: 2024Q4

REPORT INFORMATION
  Report Type: Spontaneous
  Country: JP (occurrence: JP)
  Receive Date: 20241108
  Receipt Date: 20241119
  Transmission Date: 20250115
  Serious: Yes (Hospitalization, Other)
  Sender: GUERBET
  Company Number: JP-GUERBETG_JAPAN-JP-20240157

PATIENT
  Age: 88 Year
  Sex: Female
  Weight: 53.5 kg

DRUGS (2)
  1. OPTIRAY 320 [Suspect]
     Active Substance: IOVERSOL
     Indication: Computerised tomogram
     Dosage: ONE TIME
     Route: 042
     Dates: start: 20241028, end: 20241028
  2. AMLODIPINE [Concomitant]
     Active Substance: AMLODIPINE BESYLATE
     Indication: Product used for unknown indication
     Route: 048

REACTIONS (1)
  - Anaphylactic reaction [Recovered/Resolved]

NARRATIVE: CASE EVENT DATE: 20241028
